FAERS Safety Report 15612495 (Version 1)
Quarter: 2018Q4

REPORT INFORMATION
  Report Type: Spontaneous
  Country: US (occurrence: US)
  Receive Date: 20181107
  Receipt Date: 20181107
  Transmission Date: 20190205
  Serious: No
  Sender: FDA-Public Use
  Company Number: None

PATIENT
  Age: 73 Year
  Sex: Male
  Weight: 55.43 kg

DRUGS (1)
  1. FERROUS SULFATE. [Suspect]
     Active Substance: FERROUS SULFATE
     Indication: MINERAL SUPPLEMENTATION
     Route: 048
     Dates: start: 20180823

REACTIONS (5)
  - Orthostatic hypotension [None]
  - Atrial fibrillation [None]
  - Constipation [None]
  - Abdominal pain [None]
  - Presyncope [None]

NARRATIVE: CASE EVENT DATE: 20181027
